FAERS Safety Report 6532142-9 (Version None)
Quarter: 2010Q1

REPORT INFORMATION
  Report Type: 
  Country: None (occurrence: None)
  Receive Date: 20100108
  Receipt Date: 20100105
  Transmission Date: 20100710
  Serious: Yes (Hospitalization)
  Sender: FDA-Public Use
  Company Number: CHPA2010US00511

PATIENT
  Age: 67 Week
  Sex: Female

DRUGS (3)
  1. PRIVATE LABEL (NCH) [Suspect]
     Indication: SMOKING CESSATION THERAPY
     Dosage: 14 MG, QD
     Route: 062
     Dates: start: 20091001
  2. PRIVATE LABEL (NCH) [Suspect]
     Dosage: 21 MG, QD
     Route: 062
     Dates: start: 20090801, end: 20090801
  3. UNKNOWN WATER RETENTION PILL [Concomitant]

REACTIONS (1)
  - LOWER LIMB FRACTURE [None]
